FAERS Safety Report 21768060 (Version 6)
Quarter: 2023Q2

REPORT INFORMATION
  Report Type: Report from Study
  Country: US (occurrence: US)
  Receive Date: 20221222
  Receipt Date: 20230404
  Transmission Date: 20230721
  Serious: Yes (Other)
  Sender: FDA-Public Use
  Company Number: US-002147023-NVSC2022US295341

PATIENT
  Sex: Female

DRUGS (9)
  1. PIQRAY [Suspect]
     Active Substance: ALPELISIB
     Indication: Product used for unknown indication
     Dosage: UNK
     Route: 048
  2. PIQRAY [Suspect]
     Active Substance: ALPELISIB
     Dosage: 1 DOSAGE FORM, QOD (EVERY OTHER DAY, PILL)
     Route: 048
  3. PIQRAY [Suspect]
     Active Substance: ALPELISIB
     Dosage: 1 DOSAGE FORM, QD (PILL)
     Route: 048
  4. PIQRAY [Suspect]
     Active Substance: ALPELISIB
     Dosage: 1 DOSAGE FORM, QOD (EVERY OTHER DAY)
     Route: 048
  5. PIQRAY [Suspect]
     Active Substance: ALPELISIB
     Dosage: 1 DOSAGE FORM, QD
     Route: 048
  6. PIQRAY [Suspect]
     Active Substance: ALPELISIB
     Dosage: 1 DOSAGE FORM, QD (1 PILL DAILY)
     Route: 048
  7. PIQRAY [Suspect]
     Active Substance: ALPELISIB
     Dosage: 2 DOSAGE FORM, Q72H (ON EVERY THIRD DAY TOOK 2 PILLS)
     Route: 048
  8. PIQRAY [Suspect]
     Active Substance: ALPELISIB
     Dosage: 1 DOSAGE FORM, QD (1 PILL EVERY DAY)
     Route: 048
  9. PIQRAY [Suspect]
     Active Substance: ALPELISIB
     Dosage: 2 DOSAGE FORM, QOD (EVERY OTHER DAY)
     Route: 048

REACTIONS (9)
  - Blood glucose increased [Unknown]
  - Night sweats [Unknown]
  - Chills [Unknown]
  - COVID-19 [Recovered/Resolved]
  - Dry mouth [Unknown]
  - Diarrhoea [Unknown]
  - Rash [Unknown]
  - Vomiting [Unknown]
  - Inappropriate schedule of product administration [Unknown]
